FAERS Safety Report 16019739 (Version 1)
Quarter: 2019Q1

REPORT INFORMATION
  Report Type: Spontaneous
  Country: US (occurrence: US)
  Receive Date: 20190228
  Receipt Date: 20190228
  Transmission Date: 20190418
  Serious: Yes (Hospitalization, Other)
  Sender: FDA-Public Use
  Company Number: PHEH2019US008175

PATIENT
  Sex: Female
  Weight: 55.2 kg

DRUGS (22)
  1. XELODA [Suspect]
     Active Substance: CAPECITABINE
     Indication: PRODUCT USED FOR UNKNOWN INDICATION
     Dosage: 3 DF, Q12H
     Route: 048
  2. LYRICA [Concomitant]
     Active Substance: PREGABALIN
     Indication: NEURALGIA
     Route: 065
  3. SENNA [Concomitant]
     Active Substance: SENNA LEAF\SENNOSIDES\SENNOSIDES A AND B
     Indication: PRODUCT USED FOR UNKNOWN INDICATION
     Dosage: 2 DF, QD (AT BEDTIME)
     Route: 048
  4. ZANTAC [Concomitant]
     Active Substance: RANITIDINE HYDROCHLORIDE
     Indication: PRODUCT USED FOR UNKNOWN INDICATION
     Dosage: 1 DF, BID
     Route: 048
  5. TYKERB [Suspect]
     Active Substance: LAPATINIB DITOSYLATE
     Indication: BREAST CANCER FEMALE
     Dosage: 1000 MG, QD
     Route: 048
     Dates: start: 20181013
  6. CLOBETASOL [Concomitant]
     Active Substance: CLOBETASOL
     Indication: PRODUCT USED FOR UNKNOWN INDICATION
     Dosage: PALMS AND SPLES 2 TIMES A DAY
     Route: 061
  7. ALPRAZOLAM. [Concomitant]
     Active Substance: ALPRAZOLAM
     Indication: ANXIETY
     Dosage: 1 DF, PRN
     Route: 048
  8. MINOXIDIL. [Concomitant]
     Active Substance: MINOXIDIL
     Indication: PRODUCT USED FOR UNKNOWN INDICATION
     Dosage: AFFECTED AREAS 2 TIMES ADAY FOR 30 DAYS
     Route: 061
  9. CLONIDINE. [Concomitant]
     Active Substance: CLONIDINE
     Indication: PRODUCT USED FOR UNKNOWN INDICATION
     Dosage: 1 DF, QW
     Route: 062
  10. CAPECITABINE. [Concomitant]
     Active Substance: CAPECITABINE
     Indication: PRODUCT USED FOR UNKNOWN INDICATION
     Dosage: 3 DF, Q12H (7 DAYSON,7 DAYS OFF)
     Route: 065
  11. POLYETHYLENE GLYCOL 3350. [Concomitant]
     Active Substance: POLYETHYLENE GLYCOL 3350
     Indication: PRODUCT USED FOR UNKNOWN INDICATION
     Dosage: 17 G, QD
     Route: 048
  12. ONDANSETRON [Concomitant]
     Active Substance: ONDANSETRON
     Indication: PRODUCT USED FOR UNKNOWN INDICATION
     Dosage: 1 DF, PRN
     Route: 048
  13. MIRVASO [Concomitant]
     Active Substance: BRIMONIDINE TARTRATE
     Indication: PRODUCT USED FOR UNKNOWN INDICATION
     Dosage: TOPICALLY ONCE A DAY FOR 30 DAYS IN MORNING
     Route: 061
  14. LAPATINIB [Concomitant]
     Active Substance: LAPATINIB
     Indication: PRODUCT USED FOR UNKNOWN INDICATION
     Dosage: 4 DF, QD
     Route: 048
  15. OPANA [Concomitant]
     Active Substance: OXYMORPHONE HYDROCHLORIDE
     Indication: NEURALGIA
     Dosage: 1.5 DF, Q6H
     Route: 048
  16. CELEXA [Concomitant]
     Active Substance: CITALOPRAM HYDROBROMIDE
     Indication: PRODUCT USED FOR UNKNOWN INDICATION
     Dosage: 1 DF, QD
     Route: 048
  17. DOCUSATE SODIUM. [Concomitant]
     Active Substance: DOCUSATE SODIUM
     Indication: PRODUCT USED FOR UNKNOWN INDICATION
     Dosage: 3 DF, QD
     Route: 048
  18. LATISSE [Concomitant]
     Active Substance: BIMATOPROST
     Indication: PRODUCT USED FOR UNKNOWN INDICATION
     Dosage: AFFECTED AREAS AS NEEDED
     Route: 061
  19. AVASTIN [Concomitant]
     Active Substance: BEVACIZUMAB
     Indication: PRODUCT USED FOR UNKNOWN INDICATION
     Dosage: UNK
     Route: 065
  20. METHYLPHENIDATE. [Concomitant]
     Active Substance: METHYLPHENIDATE
     Indication: PRODUCT USED FOR UNKNOWN INDICATION
     Dosage: 1 DF, BID
     Route: 048
  21. METOPROLOL SUCCINATE. [Concomitant]
     Active Substance: METOPROLOL SUCCINATE
     Indication: PRODUCT USED FOR UNKNOWN INDICATION
     Dosage: 1 DF, QD
     Route: 048
  22. XGEVA [Concomitant]
     Active Substance: DENOSUMAB
     Indication: PRODUCT USED FOR UNKNOWN INDICATION
     Dosage: UNK
     Route: 065
     Dates: end: 20190102

REACTIONS (8)
  - Pneumonia aspiration [Unknown]
  - Alopecia [Recovering/Resolving]
  - Metastases to bone [Unknown]
  - Rash [Recovering/Resolving]
  - Pneumonia [Unknown]
  - Retinopathy [Unknown]
  - Memory impairment [Unknown]
  - Effusion [Unknown]
